FAERS Safety Report 17865547 (Version 1)
Quarter: 2020Q2

REPORT INFORMATION
  Report Type: Spontaneous
  Country: US (occurrence: US)
  Receive Date: 20200605
  Receipt Date: 20200605
  Transmission Date: 20200714
  Serious: No
  Sender: FDA-Public Use
  Company Number: None

PATIENT
  Age: 40 Year
  Sex: Male
  Weight: 108 kg

DRUGS (6)
  1. TOCILIZUMAB IVPB [Concomitant]
     Dates: start: 20200527, end: 20200602
  2. CEFEPIME IVPB [Concomitant]
     Dates: start: 20200527, end: 20200530
  3. VANCOMYCIN IVPB [Concomitant]
     Dates: start: 20200527, end: 20200602
  4. AZITHROMYCIN IVPB [Concomitant]
     Dates: start: 20200527
  5. REMDESIVIR INJECTION [Suspect]
     Active Substance: REMDESIVIR
     Indication: COVID-19
     Route: 042
     Dates: start: 20200528, end: 20200602
  6. MERREM IVPB [Concomitant]
     Dates: start: 20200530

REACTIONS (2)
  - Disease progression [None]
  - Blood creatinine increased [None]

NARRATIVE: CASE EVENT DATE: 20200602
